FAERS Safety Report 4646412-2 (Version None)
Quarter: 2005Q2

REPORT INFORMATION
  Report Type: 
  Country: None (occurrence: None)
  Receive Date: 20050427
  Receipt Date: 20041111
  Transmission Date: 20051028
  Serious: No
  Sender: FDA-Public Use
  Company Number: US-GLAXOSMITHKLINE-A0533586A

PATIENT
  Sex: Male

DRUGS (9)
  1. SEREVENT [Suspect]
     Route: 055
     Dates: start: 20040701
  2. CORDARONE [Concomitant]
  3. PRINIVIL [Concomitant]
  4. AMARYL [Concomitant]
  5. ACTOS [Concomitant]
  6. GLUCOPHAGE [Concomitant]
  7. TOPROL-XL [Concomitant]
  8. LIPITOR [Concomitant]
  9. WARFARIN SODIUM [Concomitant]

REACTIONS (1)
  - DRUG INEFFECTIVE [None]
